FAERS Safety Report 23476629 (Version 1)
Quarter: 2024Q1

REPORT INFORMATION
  Report Type: Report from Study
  Country: US (occurrence: US)
  Receive Date: 20240204
  Receipt Date: 20240204
  Transmission Date: 20240410
  Serious: No
  Sender: FDA-Public Use
  Company Number: US-EXELIXIS-CABO-23063612

PATIENT
  Age: 59 Year
  Sex: Male

DRUGS (1)
  1. CABOMETYX [Suspect]
     Active Substance: CABOZANTINIB S-MALATE
     Indication: Renal cell carcinoma
     Dosage: 40 MG, QD
     Route: 048
     Dates: start: 20230427

REACTIONS (12)
  - Tenderness [Unknown]
  - Heart rate increased [Unknown]
  - Amnesia [Unknown]
  - Feeling of relaxation [Unknown]
  - Photosensitivity reaction [Unknown]
  - Heat stroke [Unknown]
  - Abdominal pain lower [Recovered/Resolved]
  - Stomatitis [Unknown]
  - Muscle spasms [Unknown]
  - Blood pressure increased [Unknown]
  - Fatigue [Unknown]
  - Dizziness [Unknown]

NARRATIVE: CASE EVENT DATE: 20230509
